FAERS Safety Report 7398404-0 (Version None)
Quarter: 2011Q2

REPORT INFORMATION
  Report Type: 
  Country: None (occurrence: None)
  Receive Date: 20110406
  Receipt Date: 20110323
  Transmission Date: 20111010
  Serious: Yes (Other)
  Sender: FDA-Public Use
  Company Number: ES-MYLANLABS-2011S1006305

PATIENT
  Sex: Female

DRUGS (2)
  1. BASILIXIMAB [Concomitant]
     Indication: IMMUNOSUPPRESSION
     Route: 065
  2. TACROLIMUS [Suspect]
     Indication: IMMUNOSUPPRESSION
     Dosage: TARGET TACROLIMUS CONCENTRATION BETWEEN 5 AND 10 NG/ML.
     Route: 065

REACTIONS (2)
  - ANAEMIA HAEMOLYTIC AUTOIMMUNE [None]
  - THROMBOCYTOPENIA [None]
